FAERS Safety Report 8520633-0 (Version None)
Quarter: 2012Q3

REPORT INFORMATION
  Report Type: 
  Country: None (occurrence: None)
  Receive Date: 20120713
  Receipt Date: 20120713
  Transmission Date: 20120928
  Serious: No
  Sender: FDA-Public Use
  Company Number: None

PATIENT
  Age: 67 Year
  Sex: Female
  Weight: 63.5036 kg

DRUGS (1)
  1. AMOXICILLIN [Suspect]
     Indication: PHARYNGITIS STREPTOCOCCAL
     Dosage: 1 TABLET TWICE DAILY MOUTH
     Route: 048
     Dates: start: 20120529, end: 20120607

REACTIONS (4)
  - ORAL DISORDER [None]
  - AGEUSIA [None]
  - DYSPHAGIA [None]
  - DYSGEUSIA [None]
